FAERS Safety Report 23270036 (Version 1)
Quarter: 2023Q4

REPORT INFORMATION
  Report Type: Spontaneous
  Country: CN (occurrence: CN)
  Receive Date: 20231207
  Receipt Date: 20231207
  Transmission Date: 20240110
  Serious: Yes (Other)
  Sender: FDA-Public Use
  Company Number: CN-JNJFOC-20231180144

PATIENT
  Age: 49 Year
  Sex: Male
  Weight: 57 kg

DRUGS (1)
  1. DARZALEX [Suspect]
     Active Substance: DARATUMUMAB
     Indication: Plasma cell myeloma
     Dosage: 0.9% SODIUM CHLORIDE INJECTION 500ML
     Route: 041
     Dates: start: 20230712, end: 20230712

REACTIONS (4)
  - Temperature intolerance [Recovering/Resolving]
  - Chest discomfort [Recovering/Resolving]
  - Dyspnoea [Recovering/Resolving]
  - Infusion related reaction [Recovering/Resolving]

NARRATIVE: CASE EVENT DATE: 20230713
